FAERS Safety Report 10089603 (Version 1)
Quarter: 2014Q2

REPORT INFORMATION
  Report Type: Spontaneous
  Country: GB (occurrence: GB)
  Receive Date: 20140421
  Receipt Date: 20140421
  Transmission Date: 20141212
  Serious: Yes (Life-Threatening, Hospitalization)
  Sender: FDA-Public Use
  Company Number: GB-MYLANLABS-2014S1008633

PATIENT
  Age: 92 Year
  Sex: Female

DRUGS (7)
  1. ATORVASTATIN [Suspect]
     Indication: HYPERCHOLESTEROLAEMIA
     Dosage: LONG TERM.
     Route: 048
     Dates: end: 20140320
  2. ISOSORBIDE MONONITRATE [Concomitant]
     Indication: MYOCARDIAL ISCHAEMIA
     Dosage: LONG TERM.  CONTINUES.
     Route: 048
  3. BISOPROLOL [Concomitant]
     Dosage: LONG TERM.  CONTINUES.
  4. ASPIRIN [Concomitant]
     Indication: MYOCARDIAL ISCHAEMIA
     Dosage: LONG TERM.
     Route: 048
     Dates: end: 20140320
  5. WARFARIN [Concomitant]
     Indication: ATRIAL FIBRILLATION
     Dosage: LONG TERM.  CONTINUING.
     Route: 048
  6. RAMIPRIL [Concomitant]
     Indication: CARDIAC FAILURE
     Dosage: 5MG + 2.5MG.  LONG TERM.
     Route: 048
     Dates: end: 20140320
  7. BUMETANIDE [Concomitant]
     Indication: MYOCARDIAL ISCHAEMIA
     Dosage: LONG TERM.
     Route: 048
     Dates: end: 20140320

REACTIONS (3)
  - Haematuria [Not Recovered/Not Resolved]
  - Oliguria [Not Recovered/Not Resolved]
  - Renal failure acute [Not Recovered/Not Resolved]
